FAERS Safety Report 14529577 (Version 1)
Quarter: 2018Q1

REPORT INFORMATION
  Report Type: Spontaneous
  Country: US (occurrence: US)
  Receive Date: 20180213
  Receipt Date: 20180213
  Transmission Date: 20180509
  Serious: No
  Sender: FDA-Public Use
  Company Number: None

PATIENT
  Age: 77 Year
  Sex: Male

DRUGS (1)
  1. CREST PRO-HEALTH ADVANCED W/EXTRA WHITENING [Suspect]
     Active Substance: SODIUM FLUORIDE

REACTIONS (4)
  - Trichoglossia [None]
  - Product label issue [None]
  - Product formulation issue [None]
  - Emotional distress [None]

NARRATIVE: CASE EVENT DATE: 20171201
